FAERS Safety Report 9078190 (Version 1)
Quarter: 2013Q1

REPORT INFORMATION
  Report Type: Report from Study
  Country: US (occurrence: US)
  Receive Date: 20130130
  Receipt Date: 20130130
  Transmission Date: 20140127
  Serious: No
  Sender: FDA-Public Use
  Company Number: US-ABBOTT-12P-163-0957427-00

PATIENT
  Age: 77 None
  Sex: Female
  Weight: 62.2 kg

DRUGS (9)
  1. HUMIRA 40 MG/0.8 ML PEN [Suspect]
     Indication: RHEUMATOID ARTHRITIS
     Dates: start: 2011, end: 201207
  2. HUMIRA 40 MG/0.8 ML PEN [Suspect]
     Dates: start: 20120711
  3. METHOTREXATE [Concomitant]
     Indication: PRODUCT USED FOR UNKNOWN INDICATION
     Dosage: 7 PILLS EVERY SATURDAY
  4. ALPRAZOLAM [Concomitant]
     Indication: INSOMNIA
     Dosage: AT NIGHT, BEFORE SLEEP
  5. PREMARIN [Concomitant]
     Indication: HOT FLUSH
     Dosage: DAILY
  6. SPIRONOLACTONE [Concomitant]
     Indication: FLUID RETENTION
     Dosage: DAILY
  7. CELEBREX [Concomitant]
     Indication: ARTHRITIS
     Dosage: 1-2 TABLETS DAILY
  8. BABY ASPIRIN [Concomitant]
     Indication: PRODUCT USED FOR UNKNOWN INDICATION
     Dosage: DAILY
  9. DIGOXIN [Concomitant]
     Indication: PALPITATIONS
     Dosage: DAILY

REACTIONS (16)
  - Joint stiffness [Not Recovered/Not Resolved]
  - Joint swelling [Not Recovered/Not Resolved]
  - Local swelling [Not Recovered/Not Resolved]
  - Foot deformity [Not Recovered/Not Resolved]
  - Unevaluable event [Not Recovered/Not Resolved]
  - Oedema peripheral [Not Recovered/Not Resolved]
  - Joint swelling [Not Recovered/Not Resolved]
  - Unevaluable event [Not Recovered/Not Resolved]
  - Insomnia [Not Recovered/Not Resolved]
  - Unevaluable event [Not Recovered/Not Resolved]
  - Gait disturbance [Not Recovered/Not Resolved]
  - Fall [Not Recovered/Not Resolved]
  - Drug ineffective [Not Recovered/Not Resolved]
  - Mobility decreased [Not Recovered/Not Resolved]
  - Arthralgia [Not Recovered/Not Resolved]
  - Mobility decreased [Not Recovered/Not Resolved]
